FAERS Safety Report 14586790 (Version 1)
Quarter: 2018Q1

REPORT INFORMATION
  Report Type: Spontaneous
  Country: SE (occurrence: SE)
  Receive Date: 20180301
  Receipt Date: 20180301
  Transmission Date: 20180509
  Serious: Yes (Other)
  Sender: FDA-Public Use
  Company Number: SE-ASTRAZENECA-2018SE24060

PATIENT
  Age: 66 Year
  Sex: Female

DRUGS (3)
  1. BRILIQUE [Suspect]
     Active Substance: TICAGRELOR
     Indication: MYOCARDIAL INFARCTION
     Route: 048
     Dates: start: 20151020, end: 20180122
  2. LEVAXIN [Concomitant]
     Active Substance: LEVOTHYROXINE SODIUM
  3. FUROSEMIDE. [Concomitant]
     Active Substance: FUROSEMIDE

REACTIONS (1)
  - Cognitive disorder [Recovered/Resolved]

NARRATIVE: CASE EVENT DATE: 20160701
